FAERS Safety Report 22724526 (Version 3)
Quarter: 2023Q4

REPORT INFORMATION
  Report Type: Spontaneous
  Country: FR (occurrence: FR)
  Receive Date: 20230719
  Receipt Date: 20231205
  Transmission Date: 20240110
  Serious: Yes (Other)
  Sender: FDA-Public Use
  Company Number: FR-002147023-NVSC2023FR158797

PATIENT
  Sex: Female

DRUGS (5)
  1. COSENTYX [Suspect]
     Active Substance: SECUKINUMAB
     Indication: Nail psoriasis
     Dosage: UNK (INJECTION NOT OTHERWISE SPECIFIED)
     Route: 065
     Dates: start: 202210
  2. METHOTREXATE [Suspect]
     Active Substance: METHOTREXATE
     Indication: Product used for unknown indication
     Dosage: UNK
     Route: 065
  3. OTEZLA [Suspect]
     Active Substance: APREMILAST
     Indication: Product used for unknown indication
     Dosage: UNK
     Route: 065
  4. LAMALINE [Concomitant]
     Indication: Product used for unknown indication
     Dosage: UNK
     Route: 065
  5. LAMALINE [Concomitant]
     Dosage: UNK
     Route: 065

REACTIONS (4)
  - Psoriatic arthropathy [Unknown]
  - Drug intolerance [Unknown]
  - Off label use [Unknown]
  - Therapeutic response shortened [Unknown]

NARRATIVE: CASE EVENT DATE: 20221001
